FAERS Safety Report 4834142-3 (Version None)
Quarter: 2005Q4

REPORT INFORMATION
  Report Type: 
  Country: None (occurrence: None)
  Receive Date: 20051122
  Receipt Date: 20051114
  Transmission Date: 20060501
  Serious: Yes (Hospitalization)
  Sender: FDA-Public Use
  Company Number: US-JNJFOC-20051104143

PATIENT
  Sex: Female
  Weight: 95.26 kg

DRUGS (7)
  1. DURAGESIC-100 [Suspect]
     Route: 062
  2. GLUCOPHAGE [Concomitant]
     Route: 048
  3. CELEBREX [Concomitant]
     Indication: ARTHRITIS
     Route: 048
  4. SYNTHROID [Concomitant]
     Indication: HYPOTHYROIDISM
     Route: 048
  5. ZOCOR [Concomitant]
     Route: 048
  6. DEMEROL [Concomitant]
     Indication: PAIN
     Dosage: AS NEEDED
     Route: 048
  7. PHENERGAN [Concomitant]
     Indication: NAUSEA
     Dosage: AS NEEDED
     Route: 050

REACTIONS (3)
  - CYSTITIS [None]
  - DEGENERATION OF UTERINE FIBROID [None]
  - NAUSEA [None]
